FAERS Safety Report 7553438-8 (Version None)
Quarter: 2011Q2

REPORT INFORMATION
  Report Type: 
  Country: None (occurrence: None)
  Receive Date: 20110617
  Receipt Date: 20110612
  Transmission Date: 20111010
  Serious: Yes (Hospitalization, Disabling)
  Sender: FDA-Public Use
  Company Number: BR-B.I. PHARMACEUTICALS,INC./RIDGEFIELD-2011-BR-00606BR

PATIENT
  Sex: Female

DRUGS (3)
  1. SIMVASTATIN [Concomitant]
  2. INSULIN [Concomitant]
     Indication: DIABETES MELLITUS
  3. MICARDIS [Suspect]
     Route: 048
     Dates: start: 19810101

REACTIONS (2)
  - INFECTION [None]
  - ARTHROPATHY [None]
